FAERS Safety Report 8809290 (Version 2)
Quarter: 2012Q4

REPORT INFORMATION
  Report Type: 
  Country: AT (occurrence: AT)
  Receive Date: 20120926
  Receipt Date: 20121012
  Transmission Date: 20130627
  Serious: Yes (Other)
  Sender: FDA-Public Use
  Company Number: AT-AMGEN-AUTSP2012059310

PATIENT
  Age: 31 Year
  Sex: Female

DRUGS (3)
  1. ENBREL [Suspect]
     Indication: POLYARTHRITIS
     Dosage: 50 mg, weekly
     Dates: start: 201010
  2. EBETREXAT                          /00113801/ [Concomitant]
     Indication: POLYARTHRITIS
     Dosage: 10 mg, 1x/day
     Dates: start: 201004
  3. FOLSAN [Concomitant]
     Indication: POLYARTHRITIS
     Dosage: 5 mg, 1x/day
     Dates: start: 201004

REACTIONS (1)
  - Malignant melanoma in situ [Recovered/Resolved]
